FAERS Safety Report 7983107 (Version 4)
Quarter: 2012Q4

REPORT INFORMATION
  Report Type: 
  Country: US (occurrence: US)
  Receive Date: 20110609
  Receipt Date: 20121126
  Transmission Date: 20130627
  Serious: Yes (Hospitalization)
  Sender: FDA-Public Use
  Company Number: US-BAYER-2011-048331

PATIENT
  Age: 23 Year
  Sex: Female

DRUGS (5)
  1. YAZ [Suspect]
     Indication: CONTRACEPTION
     Dosage: UNK
     Dates: start: 200106
  2. YASMIN [Suspect]
     Indication: CONTRACEPTION
     Dosage: UNK
     Dates: start: 200106
  3. MOTRIN [Concomitant]
     Dosage: 600 mg, QID
  4. ALBUTEROL [Concomitant]
     Indication: ASTHMA
     Dosage: 2 puff(s), PRN
  5. TYLENOL [Concomitant]

REACTIONS (5)
  - Pulmonary embolism [None]
  - Pain [None]
  - Fear [None]
  - Injury [None]
  - Pain [None]
